FAERS Safety Report 17665223 (Version 1)
Quarter: 2020Q2

REPORT INFORMATION
  Report Type: Spontaneous
  Country: US (occurrence: US)
  Receive Date: 20200413
  Receipt Date: 20200413
  Transmission Date: 20200713
  Serious: Yes (Hospitalization)
  Sender: FDA-Public Use
  Company Number: None

PATIENT
  Age: 62 Year
  Sex: Female

DRUGS (18)
  1. LOSARTAN POT [Concomitant]
     Active Substance: LOSARTAN POTASSIUM
  2. MULTI VITAMIN [Concomitant]
     Active Substance: VITAMINS
  3. FOLIC ACID. [Concomitant]
     Active Substance: FOLIC ACID
  4. XARELTO [Suspect]
     Active Substance: RIVAROXABAN
  5. BUPROPN HCL [Concomitant]
     Active Substance: BUPROPION HYDROCHLORIDE
  6. CEPHALEXIN. [Concomitant]
     Active Substance: CEPHALEXIN
  7. LORAZEPAM. [Concomitant]
     Active Substance: LORAZEPAM
  8. PROBIOTIC [Concomitant]
     Active Substance: PROBIOTICS NOS
  9. HUMIRA [Suspect]
     Active Substance: ADALIMUMAB
     Indication: PRODUCT USED FOR UNKNOWN INDICATION
     Dosage: ?          OTHER DOSE:1 PEN ;?
     Route: 058
     Dates: start: 20170207
  10. BUPROPN [Concomitant]
  11. CARTIA XT [Concomitant]
     Active Substance: DILTIAZEM HYDROCHLORIDE
  12. ASPIRIN CHW [Concomitant]
  13. PROCARDIA XL [Concomitant]
     Active Substance: NIFEDIPINE
  14. VITAMIN D3 [Concomitant]
     Active Substance: CHOLECALCIFEROL
  15. DILTOAZEM [Concomitant]
  16. BIOTIN [Concomitant]
     Active Substance: BIOTIN
  17. METHOTREXATE. [Concomitant]
     Active Substance: METHOTREXATE
  18. TRIAM/HCTZ [Concomitant]
     Active Substance: HYDROCHLOROTHIAZIDE\TRIAMTERENE

REACTIONS (1)
  - Cardiac pacemaker replacement [None]

NARRATIVE: CASE EVENT DATE: 20200129
